FAERS Safety Report 23922004 (Version 1)
Quarter: 2024Q2

REPORT INFORMATION
  Report Type: Spontaneous
  Country: US (occurrence: US)
  Receive Date: 20240531
  Receipt Date: 20240531
  Transmission Date: 20240715
  Serious: Yes (Other)
  Sender: FDA-Public Use
  Company Number: US-JNJFOC-20240560982

PATIENT
  Age: 73 Year
  Sex: Male
  Weight: 118.49 kg

DRUGS (2)
  1. DARZALEX [Suspect]
     Active Substance: DARATUMUMAB
     Indication: Plasma cell myeloma
     Dosage: DATE OF RECENT ADMINISTRATION WAS ON 23-APR-2024
     Route: 042
     Dates: start: 20210622
  2. DARZALEX [Suspect]
     Active Substance: DARATUMUMAB
     Dosage: DATE OF RECENT ADMINISTRATION WAS ON 23-APR-2024
     Route: 042
     Dates: start: 20210622

REACTIONS (2)
  - Loss of consciousness [Unknown]
  - Off label use [Unknown]

NARRATIVE: CASE EVENT DATE: 20240521
